FAERS Safety Report 6551635-1 (Version None)
Quarter: 2010Q1

REPORT INFORMATION
  Report Type: 
  Country: None (occurrence: None)
  Receive Date: 20100120
  Receipt Date: 20100107
  Transmission Date: 20100710
  Serious: Yes (Disabling)
  Sender: FDA-Public Use
  Company Number: CAP10000016

PATIENT
  Age: 69 Year
  Sex: Female
  Weight: 55.3 kg

DRUGS (5)
  1. ACTONEL [Suspect]
     Dosage: 5 MG, 1 /DAY
  2. ACTONEL [Suspect]
     Dosage: 35 MG, 1/WEEK
  3. PLAQUENIL /00072601/ (HYDROXYCHLOROQUINE) TABLET [Concomitant]
  4. SYNTHROID [Concomitant]
  5. ERGOCALCIFEROL [Concomitant]

REACTIONS (4)
  - ASTHENIA [None]
  - JOINT SWELLING [None]
  - MOBILITY DECREASED [None]
  - MUSCULOSKELETAL PAIN [None]
